FAERS Safety Report 13824180 (Version 3)
Quarter: 2022Q4

REPORT INFORMATION
  Report Type: Spontaneous
  Country: US (occurrence: None)
  Receive Date: 20170802
  Receipt Date: 20221007
  Transmission Date: 20230113
  Serious: Yes (Life-Threatening, Other)
  Sender: FDA-Public Use
  Company Number: 2017SE78104

PATIENT
  Age: 61 Year
  Sex: Female
  Weight: 78.5 kg

DRUGS (32)
  1. NEXIUM [Suspect]
     Active Substance: ESOMEPRAZOLE MAGNESIUM
     Indication: Gastric pH decreased
     Route: 048
     Dates: start: 2008, end: 2009
  2. PRILOSEC [Suspect]
     Active Substance: OMEPRAZOLE MAGNESIUM
     Indication: Gastric pH decreased
     Route: 048
  3. PRILOSEC OTC [Suspect]
     Active Substance: OMEPRAZOLE MAGNESIUM
     Indication: Gastric pH decreased
     Route: 048
  4. ATACAND [Concomitant]
     Active Substance: CANDESARTAN CILEXETIL
     Indication: Renal disorder
  5. LASIX [Concomitant]
     Active Substance: FUROSEMIDE
  6. LYRICA [Concomitant]
     Active Substance: PREGABALIN
     Indication: Fibromyalgia
  7. LIPITOR [Concomitant]
     Active Substance: ATORVASTATIN CALCIUM
  8. COREG [Concomitant]
     Active Substance: CARVEDILOL
     Indication: Hypertension
  9. HYDRALAZINE [Concomitant]
     Active Substance: HYDRALAZINE HYDROCHLORIDE
  10. HYDROCODONE [Concomitant]
     Active Substance: HYDROCODONE
     Indication: Pain
  11. CIMETIDINE [Concomitant]
     Active Substance: CIMETIDINE
     Dates: start: 2008
  12. ROLAIDS [Concomitant]
     Active Substance: CALCIUM CARBONATE\MAGNESIUM HYDROXIDE
  13. TUMS [Concomitant]
     Active Substance: CALCIUM CARBONATE
  14. ALLOPURINOL [Concomitant]
     Active Substance: ALLOPURINOL
  15. FUROSEMIDE [Concomitant]
     Active Substance: FUROSEMIDE
  16. ONDANSETRON [Concomitant]
     Active Substance: ONDANSETRON
  17. PREDNISONE [Concomitant]
     Active Substance: PREDNISONE
  18. DOXYCYCLINE [Concomitant]
     Active Substance: DOXYCYCLINE
  19. BENZONATATE [Concomitant]
     Active Substance: BENZONATATE
  20. METHYLPREDNISOLONE [Concomitant]
     Active Substance: METHYLPREDNISOLONE
  21. GABAPENTIN [Concomitant]
     Active Substance: GABAPENTIN
  22. ATORVASTATIN [Concomitant]
     Active Substance: ATORVASTATIN
  23. SIMVASTATIN [Concomitant]
     Active Substance: SIMVASTATIN
  24. TRAMADOL [Concomitant]
     Active Substance: TRAMADOL
  25. GEMFIBROZIL [Concomitant]
     Active Substance: GEMFIBROZIL
  26. LISINOPRIL [Concomitant]
     Active Substance: LISINOPRIL
  27. CLONIDINE [Concomitant]
     Active Substance: CLONIDINE
  28. BUMETANIDE [Concomitant]
     Active Substance: BUMETANIDE
  29. DIAZEPAM [Concomitant]
     Active Substance: DIAZEPAM
  30. TORSEMIDE [Concomitant]
     Active Substance: TORSEMIDE
  31. PROMETHAZINE [Concomitant]
     Active Substance: PROMETHAZINE HYDROCHLORIDE
  32. AMLODIPINE [Concomitant]
     Active Substance: AMLODIPINE BESYLATE

REACTIONS (10)
  - Renal impairment [Unknown]
  - Acute kidney injury [Unknown]
  - Chronic kidney disease [Not Recovered/Not Resolved]
  - Renal failure [Unknown]
  - End stage renal disease [Unknown]
  - Tubulointerstitial nephritis [Unknown]
  - Glomerulonephritis membranous [Unknown]
  - Hypertension [Not Recovered/Not Resolved]
  - Peripheral swelling [Unknown]
  - Nausea [Unknown]

NARRATIVE: CASE EVENT DATE: 20120101
